FAERS Safety Report 8304223-0 (Version None)
Quarter: 2012Q2

REPORT INFORMATION
  Report Type: 
  Country: None (occurrence: None)
  Receive Date: 20120423
  Receipt Date: 20120410
  Transmission Date: 20120825
  Serious: Yes (Other)
  Sender: FDA-Public Use
  Company Number: ES-JNJFOC-20120404943

PATIENT

DRUGS (1)
  1. INFLIXIMAB, RECOMBINANT [Suspect]
     Indication: HIDRADENITIS
     Dosage: AT WEEK 0, 2, 6 AND THEN EVERY 8 WEEKS
     Route: 042

REACTIONS (5)
  - ANTINUCLEAR ANTIBODY POSITIVE [None]
  - PSORIASIS [None]
  - LIPIDS INCREASED [None]
  - CONDITION AGGRAVATED [None]
  - DRUG INEFFECTIVE [None]
